FAERS Safety Report 10009630 (Version 1)
Quarter: 2014Q1

REPORT INFORMATION
  Report Type: Spontaneous
  Country: US (occurrence: US)
  Receive Date: 20140312
  Receipt Date: 20140312
  Transmission Date: 20141002
  Serious: No
  Sender: FDA-Public Use
  Company Number: US-INCYTE CORPORATION-2012IN002299

PATIENT
  Sex: Male
  Weight: 94.33 kg

DRUGS (2)
  1. JAKAFI [Suspect]
     Indication: MYELOFIBROSIS
     Dosage: 10 MG, BID
     Route: 048
     Dates: start: 20111213
  2. JAKAFI [Suspect]
     Dosage: 20 MG IN THE MORNING AND 10 MG AT NIGHT

REACTIONS (1)
  - Platelet count increased [Unknown]
